FAERS Safety Report 15015800 (Version 1)
Quarter: 2018Q2

REPORT INFORMATION
  Report Type: Report from Study
  Country: GB (occurrence: GB)
  Receive Date: 20180615
  Receipt Date: 20180615
  Transmission Date: 20180711
  Serious: Yes (Death, Hospitalization, Other)
  Sender: FDA-Public Use
  Company Number: GB-TEVA-2018-GB-909490

PATIENT
  Age: 63 Year
  Sex: Male

DRUGS (5)
  1. LEUCOVORIN. [Suspect]
     Active Substance: LEUCOVORIN
     Indication: PANCREATIC CARCINOMA
     Dosage: FOLFIRINOX MODIFIED; AT A 75% REDUCED DOSE
     Route: 065
  2. OXALIPLATIN. [Suspect]
     Active Substance: OXALIPLATIN
     Indication: PANCREATIC CARCINOMA
     Dosage: FOLFIRINOX MODIFIED; AT A 75% REDUCED DOSE
     Route: 065
  3. GEMCITABINE [Suspect]
     Active Substance: GEMCITABINE\GEMCITABINE HYDROCHLORIDE
     Indication: PANCREATIC CARCINOMA
     Dosage: 1.000 MG/M2 TO THE NEAR-EST 38 MG AS 2.100 MG GIVEN ON DAY 1, 8, 15 ON A 28-DAY CYCLE
     Route: 065
  4. 5-FU [Suspect]
     Active Substance: FLUOROURACIL
     Indication: PANCREATIC CARCINOMA
     Dosage: FOLFIRINOX MODIFIED; AT A 75% REDUCED DOSE
     Route: 065
  5. IRINOTECAN [Suspect]
     Active Substance: IRINOTECAN
     Indication: PANCREATIC CARCINOMA
     Dosage: FOLFIRINOX MODIFIED; AT A 75% REDUCED DOSE
     Route: 065

REACTIONS (9)
  - Systolic dysfunction [Recovered/Resolved]
  - Left atrial dilatation [Recovered/Resolved]
  - Fatigue [Unknown]
  - Acute kidney injury [Unknown]
  - Neuropathy peripheral [Unknown]
  - Mitral valve incompetence [Recovered/Resolved]
  - Tricuspid valve incompetence [Recovered/Resolved]
  - Cardiac failure [Recovered/Resolved]
  - Cardiomyopathy [Recovered/Resolved]
